FAERS Safety Report 5872527-7 (Version None)
Quarter: 2008Q3

REPORT INFORMATION
  Report Type: 
  Country: None (occurrence: None)
  Receive Date: 20080905
  Receipt Date: 20080721
  Transmission Date: 20090109
  Serious: Yes (Hospitalization)
  Sender: FDA-Public Use
  Company Number: US-BRISTOL-MYERS SQUIBB COMPANY-14321962

PATIENT
  Age: 77 Year
  Sex: Male
  Weight: 97 kg

DRUGS (16)
  1. CETUXIMAB [Suspect]
     Indication: NON-SMALL CELL LUNG CANCER METASTATIC
     Dosage: INITIATED ON 22MAY08
     Route: 042
     Dates: start: 20080612, end: 20080612
  2. PEMETREXED DISODIUM [Suspect]
     Indication: NON-SMALL CELL LUNG CANCER METASTATIC
     Dosage: INITIATED ON 22MAY08,DRUG HELD ON 21JUL08
     Route: 042
     Dates: start: 20080710, end: 20080710
  3. LOPRESSOR [Concomitant]
     Indication: HYPERTENSION
  4. DIABETA [Concomitant]
     Indication: TYPE 2 DIABETES MELLITUS
  5. CATAPRES [Concomitant]
     Indication: HYPERTENSION
  6. ACYCLOVIR [Concomitant]
  7. SENOKOT [Concomitant]
     Indication: CONSTIPATION PROPHYLAXIS
  8. PRILOSEC [Concomitant]
  9. LISINOPRIL [Concomitant]
     Indication: HYPERTENSION
  10. ROCALTROL [Concomitant]
  11. LASIX [Concomitant]
     Indication: HYPERTENSION
  12. IRON [Concomitant]
     Indication: MINERAL SUPPLEMENTATION
  13. ASPIRIN [Concomitant]
  14. FISH OIL [Concomitant]
  15. ZOCOR [Concomitant]
     Indication: HYPERCHOLESTEROLAEMIA
  16. EZETIMIBE [Concomitant]
     Indication: HYPERCHOLESTEROLAEMIA

REACTIONS (4)
  - ASTHENIA [None]
  - EPISTAXIS [None]
  - HAEMOGLOBIN DECREASED [None]
  - PLATELET COUNT DECREASED [None]
